FAERS Safety Report 21095554 (Version 1)
Quarter: 2022Q3

REPORT INFORMATION
  Report Type: Spontaneous
  Country: GB (occurrence: GB)
  Receive Date: 20220718
  Receipt Date: 20220718
  Transmission Date: 20221027
  Serious: Yes (Other)
  Sender: FDA-Public Use
  Company Number: None

PATIENT
  Age: 16 Year
  Sex: Male
  Weight: 49 kg

DRUGS (5)
  1. DOXYCYCLINE HYCLATE [Suspect]
     Active Substance: DOXYCYCLINE HYCLATE
     Indication: Product used for unknown indication
     Dosage: TAKE TWO NOW THEN ONE DAILY, TO TREAT, UNIT DOSE : 50 MG,THERAPY DURATION : 4 DAYS, CAPSULES CONTAIN
     Route: 065
     Dates: start: 20220705
  2. BECLOMETHASONE DIPROPIONATE [Concomitant]
     Active Substance: BECLOMETHASONE DIPROPIONATE
     Indication: Ill-defined disorder
     Dosage: 4 DOSAGE FORMS DAILY; UNIT DOSE : 2 DOSAGE FORMS , FREQUENCY :2 , FREQUENCY TIME : 1 DAYS,
     Route: 055
     Dates: start: 20170522
  3. MEBEVERINE HYDROCHLORIDE [Concomitant]
     Active Substance: MEBEVERINE HYDROCHLORIDE
     Indication: Ill-defined disorder
     Dosage: 3 DOSAGE FORMS DAILY; UNIT DOSE : 1 DOSAGE FORMS , FREQUENCY : 3 , FREQUENCY TIME : 1 DAYS,
     Dates: start: 20210802
  4. ALBUTEROL [Concomitant]
     Active Substance: ALBUTEROL
     Indication: Ill-defined disorder
     Dosage: INHALE ONE OR TWO PUFFS AS NEEDED TO RELIEVE BR...
     Route: 055
     Dates: start: 20220705
  5. VENTOLIN [Concomitant]
     Active Substance: ALBUTEROL SULFATE
     Indication: Ill-defined disorder
     Dosage: UNIT DOSE : 2 DOSAGE FORMS ,FREQUENCY TIME : AS REQUIRED
     Route: 055
     Dates: start: 20170522

REACTIONS (5)
  - Dyspnoea [Unknown]
  - Vomiting [Recovering/Resolving]
  - Tremor [Recovering/Resolving]
  - Dizziness [Recovered/Resolved]
  - Nausea [Recovered/Resolved]

NARRATIVE: CASE EVENT DATE: 20220706
